FAERS Safety Report 4726455-0 (Version None)
Quarter: 2005Q3

REPORT INFORMATION
  Report Type: 
  Country: None (occurrence: None)
  Receive Date: 20050725
  Receipt Date: 20050712
  Transmission Date: 20060218
  Serious: Yes (Hospitalization)
  Sender: FDA-Public Use
  Company Number: 197761

PATIENT
  Sex: Female
  Weight: 78.0187 kg

DRUGS (3)
  1. AVONEX [Suspect]
     Indication: MULTIPLE SCLEROSIS
     Dosage: 30 UG; QW; IM
     Route: 030
     Dates: start: 19960101, end: 20031101
  2. AVONEX [Suspect]
     Indication: MULTIPLE SCLEROSIS
     Dosage: 30 UG; QW; IM
     Route: 030
     Dates: start: 20031101
  3. MULTI-VITAMINS [Concomitant]

REACTIONS (8)
  - ANKLE FRACTURE [None]
  - ASTHENIA [None]
  - FALL [None]
  - FIBULA FRACTURE [None]
  - INFLUENZA LIKE ILLNESS [None]
  - MULTIPLE SCLEROSIS [None]
  - PRURITUS [None]
  - TIBIA FRACTURE [None]
